FAERS Safety Report 11726038 (Version 3)
Quarter: 2015Q4

REPORT INFORMATION
  Report Type: Report from Study
  Country: US (occurrence: US)
  Receive Date: 20151112
  Receipt Date: 20151215
  Transmission Date: 20160304
  Serious: Yes (Hospitalization, Other)
  Sender: FDA-Public Use
  Company Number: US-AMGEN-USASL2015118514

PATIENT
  Age: 51 Year
  Sex: Female

DRUGS (13)
  1. PROLIA [Suspect]
     Active Substance: DENOSUMAB
     Indication: OSTEOPOROSIS POSTMENOPAUSAL
     Dosage: UNK, Q6MO
     Route: 065
     Dates: start: 201310
  2. COREG [Concomitant]
     Active Substance: CARVEDILOL
  3. ASPIRIN                            /00002701/ [Concomitant]
     Active Substance: ASPIRIN
  4. PANTOPRAZOLE [Concomitant]
     Active Substance: PANTOPRAZOLE SODIUM
     Dosage: 40 MG, UNK
  5. ISOSORBIDE MONONITRATE. [Concomitant]
     Active Substance: ISOSORBIDE MONONITRATE
  6. RANEXA [Concomitant]
     Active Substance: RANOLAZINE
  7. CALCIUM [Concomitant]
     Active Substance: CALCIUM
  8. BABY ASPIRIN [Concomitant]
     Active Substance: ASPIRIN
  9. PLAVIX [Concomitant]
     Active Substance: CLOPIDOGREL BISULFATE
  10. VITAMIN D3 [Concomitant]
     Active Substance: CHOLECALCIFEROL
  11. LIPITOR [Concomitant]
     Active Substance: ATORVASTATIN CALCIUM
  12. LOSARTAN. [Concomitant]
     Active Substance: LOSARTAN
     Dosage: 25 MG, UNK
  13. INSULIN [Concomitant]
     Active Substance: INSULIN NOS

REACTIONS (12)
  - Loose tooth [Unknown]
  - Urticaria [Unknown]
  - Periarthritis [Unknown]
  - Angioplasty [Unknown]
  - Spinal fracture [Unknown]
  - Fall [Unknown]
  - Cerebrovascular accident [Unknown]
  - Rib fracture [Unknown]
  - Pain in extremity [Unknown]
  - Drug dose omission [Unknown]
  - Fear of injection [Unknown]
  - Hypotension [Unknown]

NARRATIVE: CASE EVENT DATE: 201310
